FAERS Safety Report 9336939 (Version 1)
Quarter: 2013Q2

REPORT INFORMATION
  Report Type: Other
  Country: TH (occurrence: TH)
  Receive Date: 20130607
  Receipt Date: 20130607
  Transmission Date: 20140414
  Serious: Yes (Life-Threatening)
  Sender: FDA-Public Use
  Company Number: TH-BRISTOL-MYERS SQUIBB COMPANY-18946376

PATIENT
  Age: 58 Year
  Sex: Male

DRUGS (7)
  1. ATAZANAVIR [Suspect]
     Indication: HIV INFECTION
  2. RITONAVIR [Concomitant]
  3. ASPIRIN [Concomitant]
  4. GEMFIBROZIL [Concomitant]
  5. ROSUVASTATIN [Concomitant]
  6. ZIDOVUDINE [Concomitant]
  7. LAMIVUDINE [Concomitant]

REACTIONS (2)
  - Atrioventricular block first degree [Unknown]
  - Ventricular tachycardia [Unknown]
